FAERS Safety Report 18763910 (Version 1)
Quarter: 2021Q1

REPORT INFORMATION
  Report Type: Spontaneous
  Country: US (occurrence: US)
  Receive Date: 20210120
  Receipt Date: 20210120
  Transmission Date: 20210419
  Serious: Yes (Other)
  Sender: FDA-Public Use
  Company Number: US-GLENMARK PHARMACEUTICALS-2020GMK050856

PATIENT

DRUGS (6)
  1. LAMOTRIGINE TABLETS (CHEWABLE, DISPERSIBLE), 5 MG [Suspect]
     Active Substance: LAMOTRIGINE
     Indication: SUICIDAL IDEATION
  2. BUSPAR [Concomitant]
     Active Substance: BUSPIRONE HYDROCHLORIDE
     Indication: PSYCHOMOTOR HYPERACTIVITY
     Dosage: UNK, BID
     Route: 048
  3. LEVOTHYROXINE. [Concomitant]
     Active Substance: LEVOTHYROXINE
     Indication: HYPOTHYROIDISM
     Dosage: UNK, OD
     Route: 048
  4. LAMOTRIGINE TABLETS (CHEWABLE, DISPERSIBLE), 5 MG [Suspect]
     Active Substance: LAMOTRIGINE
     Indication: PROPHYLAXIS
  5. LAMOTRIGINE TABLETS (CHEWABLE, DISPERSIBLE), 5 MG [Suspect]
     Active Substance: LAMOTRIGINE
     Indication: NERVOUS SYSTEM DISORDER
     Dosage: 6.2 MILLIGRAM, QD
     Route: 048
     Dates: start: 202004
  6. CLONIDINE. [Concomitant]
     Active Substance: CLONIDINE
     Indication: PSYCHOMOTOR HYPERACTIVITY
     Dosage: UNK (WEARS 24/7)
     Route: 065

REACTIONS (4)
  - Wrong technique in product usage process [Unknown]
  - Nausea [Recovered/Resolved]
  - Near death experience [Not Recovered/Not Resolved]
  - Product use issue [Unknown]

NARRATIVE: CASE EVENT DATE: 2020
